FAERS Safety Report 7117612-7 (Version None)
Quarter: 2010Q4

REPORT INFORMATION
  Report Type: 
  Country: None (occurrence: None)
  Receive Date: 20101122
  Receipt Date: 20101112
  Transmission Date: 20110411
  Serious: Yes (Other)
  Sender: FDA-Public Use
  Company Number: US-AMGEN-USASP2010004938

PATIENT

DRUGS (3)
  1. NPLATE [Suspect]
     Indication: IDIOPATHIC THROMBOCYTOPENIC PURPURA
     Dates: start: 20100504, end: 20100928
  2. CORTICOSTEROIDS [Concomitant]
     Dosage: UNK
     Dates: start: 20100420
  3. IMMU-G [Concomitant]

REACTIONS (4)
  - BONE MARROW RETICULIN FIBROSIS [None]
  - LEUKAEMOID REACTION [None]
  - LEUKOCYTOSIS [None]
  - THERAPEUTIC RESPONSE DECREASED [None]
